FAERS Safety Report 24945545 (Version 1)
Quarter: 2025Q1

REPORT INFORMATION
  Report Type: Spontaneous
  Country: BG (occurrence: BG)
  Receive Date: 20250209
  Receipt Date: 20250209
  Transmission Date: 20250409
  Serious: Yes (Other)
  Sender: BAYER HEALTHCARE PHARMACEUTICALS INC.
  Company Number: BG-BAYER-2025A014006

PATIENT
  Age: 82 Year
  Sex: Male

DRUGS (17)
  1. KERENDIA [Suspect]
     Active Substance: FINERENONE
  2. BISOPROLOL [Concomitant]
     Active Substance: BISOPROLOL
     Dosage: 10 MG, QD
     Dates: start: 202404
  3. BISOPROLOL [Concomitant]
     Active Substance: BISOPROLOL
     Dosage: 10 MG, QD
     Dates: start: 202410
  4. LISINOPRIL AND HYDROCHLOROTHIAZIDE [Concomitant]
     Active Substance: HYDROCHLOROTHIAZIDE\LISINOPRIL
     Dates: start: 202404
  5. LISINOPRIL AND HYDROCHLOROTHIAZIDE [Concomitant]
     Active Substance: HYDROCHLOROTHIAZIDE\LISINOPRIL
     Dates: start: 202410
  6. AMLODIPINE [Concomitant]
     Active Substance: AMLODIPINE BESYLATE
     Dosage: 5 MG, QD
     Dates: start: 202404
  7. AMLODIPINE [Concomitant]
     Active Substance: AMLODIPINE BESYLATE
     Dosage: 5 MG, QD
     Dates: start: 202410
  8. DOXAZOSIN [Concomitant]
     Active Substance: DOXAZOSIN MESYLATE
     Dosage: 2 MG, BID
     Dates: start: 202404
  9. DOXAZOSIN [Concomitant]
     Active Substance: DOXAZOSIN MESYLATE
     Dosage: 2 MG, BID
     Dates: start: 202410
  10. GLICLAZIDE [Concomitant]
     Active Substance: GLICLAZIDE
     Dosage: 60 MG, QD
     Dates: start: 202404
  11. GLICLAZIDE [Concomitant]
     Active Substance: GLICLAZIDE
     Dosage: 60 MG, QD
     Dates: start: 202410
  12. LINAGLIPTIN\METFORMIN HYDROCHLORIDE [Concomitant]
     Active Substance: LINAGLIPTIN\METFORMIN HYDROCHLORIDE
     Dates: start: 202404
  13. LINAGLIPTIN\METFORMIN HYDROCHLORIDE [Concomitant]
     Active Substance: LINAGLIPTIN\METFORMIN HYDROCHLORIDE
     Dates: start: 202410
  14. FEBUXOSTAT [Concomitant]
     Active Substance: FEBUXOSTAT
     Dates: start: 202404
  15. FEBUXOSTAT [Concomitant]
     Active Substance: FEBUXOSTAT
     Dates: start: 202410
  16. .ALPHA.-LIPOIC ACID [Concomitant]
     Active Substance: .ALPHA.-LIPOIC ACID
     Dosage: 600 MG, QD
     Dates: start: 202404
  17. .ALPHA.-LIPOIC ACID [Concomitant]
     Active Substance: .ALPHA.-LIPOIC ACID
     Dosage: 600 MG, QD
     Dates: start: 202410

REACTIONS (7)
  - Blood urea increased [None]
  - Blood creatinine increased [None]
  - Hydronephrosis [None]
  - Ureteral neoplasm [None]
  - Transitional cell carcinoma [None]
  - Benign prostatic hyperplasia [None]
  - Urinary tract infection [None]

NARRATIVE: CASE EVENT DATE: 20190605
